FAERS Safety Report 20915591 (Version 4)
Quarter: 2022Q3

REPORT INFORMATION
  Report Type: Spontaneous
  Country: JP (occurrence: JP)
  Receive Date: 20220604
  Receipt Date: 20220707
  Transmission Date: 20221027
  Serious: Yes (Death, Other)
  Sender: FDA-Public Use
  Company Number: JP-AMGEN-JPNSP2022095993

PATIENT
  Age: 64 Year
  Sex: Male

DRUGS (1)
  1. LUMAKRAS [Suspect]
     Active Substance: SOTORASIB
     Indication: Non-small cell lung cancer stage IV
     Dosage: 960 MILLIGRAM, QD
     Dates: start: 20220520, end: 20220524

REACTIONS (2)
  - Non-small cell lung cancer [Fatal]
  - Adenocarcinoma [Fatal]
